FAERS Safety Report 18218386 (Version 1)
Quarter: 2020Q3

REPORT INFORMATION
  Report Type: Spontaneous
  Country: US (occurrence: US)
  Receive Date: 20200831
  Receipt Date: 20200831
  Transmission Date: 20201103
  Serious: No
  Sender: FDA-Public Use
  Company Number: None

PATIENT
  Age: 70 Year
  Sex: Male
  Weight: 88.9 kg

DRUGS (1)
  1. FUROSEMIDE (FUROSEMIDE 40MG TAB) [Suspect]
     Active Substance: FUROSEMIDE
     Indication: CARDIAC FAILURE CONGESTIVE
     Route: 048
     Dates: start: 20191101

REACTIONS (9)
  - Fatigue [None]
  - Acute kidney injury [None]
  - Fluid overload [None]
  - Urine output decreased [None]
  - Weight increased [None]
  - Chromaturia [None]
  - Bradycardia [None]
  - Dyspnoea [None]
  - Treatment noncompliance [None]

NARRATIVE: CASE EVENT DATE: 20200214
